FAERS Safety Report 24463527 (Version 1)
Quarter: 2024Q4

REPORT INFORMATION
  Report Type: Report from Study
  Country: US (occurrence: US)
  Receive Date: 20241018
  Receipt Date: 20241018
  Transmission Date: 20250115
  Serious: No
  Sender: ROCHE
  Company Number: US-ROCHE-3079104

PATIENT
  Age: 67 Year
  Sex: Female
  Weight: 221.0 kg

DRUGS (8)
  1. XOLAIR [Suspect]
     Active Substance: OMALIZUMAB
     Indication: Asthma
     Route: 058
  2. XOLAIR [Suspect]
     Active Substance: OMALIZUMAB
     Route: 058
  3. SINGULAIR [Concomitant]
     Active Substance: MONTELUKAST SODIUM
  4. FLUTICASONE PROPIONATE [Concomitant]
     Active Substance: FLUTICASONE PROPIONATE
  5. METOPROLOL TARTRATE [Concomitant]
     Active Substance: METOPROLOL TARTRATE
  6. ALBUTEROL [Concomitant]
     Active Substance: ALBUTEROL
  7. CODEINE [Concomitant]
     Active Substance: CODEINE
  8. PROPOXYPHENE [Concomitant]
     Active Substance: PROPOXYPHENE

REACTIONS (2)
  - Off label use [Unknown]
  - No adverse event [Unknown]
